FAERS Safety Report 23081217 (Version 2)
Quarter: 2023Q4

REPORT INFORMATION
  Report Type: Spontaneous
  Country: JP (occurrence: JP)
  Receive Date: 20231018
  Receipt Date: 20231116
  Transmission Date: 20240110
  Serious: Yes (Hospitalization)
  Sender: FDA-Public Use
  Company Number: JP-Eisai-202305092_LEN-EC_P_1

PATIENT
  Age: 67 Year
  Sex: Female

DRUGS (2)
  1. LENVIMA [Suspect]
     Active Substance: LENVATINIB
     Indication: Endometrial cancer
     Dosage: DOSE AND FREQUENCY UNKNOWN
     Route: 048
     Dates: start: 20220308, end: 202208
  2. KEYTRUDA [Suspect]
     Active Substance: PEMBROLIZUMAB
     Indication: Endometrial cancer
     Dosage: DOSE AND FREQUENCY UNKNOWN
     Route: 041
     Dates: start: 20220308, end: 202208

REACTIONS (6)
  - Interstitial lung disease [Recovering/Resolving]
  - Stomatitis [Unknown]
  - Malaise [Unknown]
  - Hypothyroidism [Unknown]
  - Diarrhoea [Unknown]
  - Proteinuria [Unknown]

NARRATIVE: CASE EVENT DATE: 20220817
